FAERS Safety Report 21682177 (Version 1)
Quarter: 2022Q4

REPORT INFORMATION
  Report Type: Spontaneous
  Country: US (occurrence: US)
  Receive Date: 20221205
  Receipt Date: 20221205
  Transmission Date: 20230113
  Serious: No
  Sender: FDA-Public Use
  Company Number: US-BRISTOL-MYERS SQUIBB COMPANY-2022-147551

PATIENT
  Age: 66 Year
  Sex: Female
  Weight: 83.46 kg

DRUGS (1)
  1. LENALIDOMIDE [Suspect]
     Active Substance: LENALIDOMIDE
     Indication: Plasma cell myeloma
     Dosage: FREQ - QD21DON7DOFF
     Route: 048

REACTIONS (2)
  - Skin discolouration [Unknown]
  - Abdominal distension [Unknown]
